FAERS Safety Report 10189124 (Version 3)
Quarter: 2020Q1

REPORT INFORMATION
  Report Type: Spontaneous
  Country: US (occurrence: US)
  Receive Date: 20140522
  Receipt Date: 20200224
  Transmission Date: 20200409
  Serious: Yes (Other)
  Sender: FDA-Public Use
  Company Number: US-PFIZER INC-2014135915

PATIENT
  Age: 67 Year
  Sex: Female
  Weight: 79.1 kg

DRUGS (1)
  1. PREMARIN [Suspect]
     Active Substance: ESTROGENS, CONJUGATED
     Indication: HYSTERECTOMY
     Dosage: 0.3 MG (1 TABLET), DAILY
     Route: 048

REACTIONS (1)
  - Hypertension [Unknown]
